FAERS Safety Report 6579479-5 (Version None)
Quarter: 2010Q1

REPORT INFORMATION
  Report Type: 
  Country: None (occurrence: None)
  Receive Date: 20100212
  Receipt Date: 20100205
  Transmission Date: 20100710
  Serious: Yes (Hospitalization)
  Sender: FDA-Public Use
  Company Number: FR-WYE-G05519810

PATIENT
  Sex: Male
  Weight: 76 kg

DRUGS (5)
  1. GEMTUZUMAB OZOGAMICIN [Suspect]
     Dosage: 11.3 MG (FREQUENCY UNKNOWN)
     Route: 042
     Dates: start: 20060623, end: 20060707
  2. TAZOCILLINE [Concomitant]
     Indication: INFECTION PROPHYLAXIS
     Dosage: 12 G TOTAL DAILY
     Route: 042
     Dates: start: 20060823
  3. VP-16 [Suspect]
     Dates: start: 20060824, end: 20060826
  4. MITOXANTRONE [Suspect]
     Dosage: 12.8 MG TOTAL DAILY
     Dates: start: 20060824, end: 20060824
  5. ARACYTINE [Suspect]
     Dates: start: 20060824, end: 20060827

REACTIONS (1)
  - ACUTE PULMONARY OEDEMA [None]
